FAERS Safety Report 23261934 (Version 1)
Quarter: 2023Q4

REPORT INFORMATION
  Report Type: Report from Study
  Country: IT (occurrence: IT)
  Receive Date: 20231205
  Receipt Date: 20231205
  Transmission Date: 20240110
  Serious: Yes (Life-Threatening, Other)
  Sender: FDA-Public Use
  Company Number: IT-GUERBET / GUERBET SpA-IT-20230089

PATIENT
  Age: 65 Year
  Sex: Female

DRUGS (1)
  1. IOVERSOL [Suspect]
     Active Substance: IOVERSOL
     Indication: Angiocardiogram

REACTIONS (1)
  - Kounis syndrome [Unknown]

NARRATIVE: CASE EVENT DATE: 20200101
